FAERS Safety Report 9869754 (Version 1)
Quarter: 2014Q1

REPORT INFORMATION
  Report Type: Spontaneous
  Country: US (occurrence: US)
  Receive Date: 20140205
  Receipt Date: 20140205
  Transmission Date: 20141002
  Serious: No
  Sender: FDA-Public Use
  Company Number: US-GLAXOSMITHKLINE-A1025985A

PATIENT
  Sex: Male

DRUGS (3)
  1. FONDAPARINUX [Suspect]
     Indication: THROMBOSIS
     Dosage: 1INJ IN THE MORNING
     Route: 065
     Dates: start: 20130415
  2. WARFARIN [Concomitant]
  3. LOVENOX [Concomitant]

REACTIONS (4)
  - Contusion [Unknown]
  - Injection site induration [Unknown]
  - Drug dispensing error [Unknown]
  - Injection site swelling [Unknown]
